FAERS Safety Report 6266743-2 (Version None)
Quarter: 2009Q3

REPORT INFORMATION
  Report Type: 
  Country: None (occurrence: None)
  Receive Date: 20090714
  Receipt Date: 20070414
  Transmission Date: 20100115
  Serious: Yes (Hospitalization, Other)
  Sender: FDA-Public Use
  Company Number: US-ASTRAZENECA-2006UW06088

PATIENT
  Age: 39 Year
  Sex: Male
  Weight: 83 kg

DRUGS (19)
  1. SEROQUEL [Suspect]
     Indication: DEPRESSION
     Dosage: 100 MG-600 MG
     Route: 048
     Dates: start: 20050423
  2. SEROQUEL [Suspect]
     Indication: ANXIETY
     Dosage: 100 MG-600 MG
     Route: 048
     Dates: start: 20050423
  3. SEROQUEL [Suspect]
     Indication: SLEEP DISORDER
     Dosage: 100 MG-600 MG
     Route: 048
     Dates: start: 20050423
  4. LIPITOR [Concomitant]
     Indication: HYPERLIPIDAEMIA
     Dosage: 10-80 MG
     Route: 048
  5. ACCUPRIL [Concomitant]
     Indication: HYPERTENSION
     Dosage: 5-10 MG
     Route: 048
  6. METHADONE HCL [Concomitant]
     Dosage: 2.5-35 MG
     Route: 048
  7. PAMELOR [Concomitant]
     Dosage: 25-50 MG
     Route: 048
  8. CYMBALTA [Concomitant]
     Dosage: 20-120 MG
     Route: 048
  9. ASPIRIN [Concomitant]
     Route: 048
  10. COMPAZINE [Concomitant]
     Indication: NAUSEA
     Route: 048
  11. TRILEPTAL [Concomitant]
     Dosage: 150-600 MG
     Route: 048
  12. LANTUS [Concomitant]
     Dosage: 10-100 U/ML
     Route: 058
  13. COLACE [Concomitant]
     Dosage: 100-200 MG
     Route: 048
  14. LYRICA [Concomitant]
     Route: 048
  15. ZETIA [Concomitant]
     Route: 048
  16. PRILOSEC [Concomitant]
     Route: 048
  17. ZELNORM [Concomitant]
     Dosage: 6-12 MG
     Route: 048
  18. OXYCODONE [Concomitant]
     Indication: PAIN
     Route: 048
  19. TRAMADOL HCL [Concomitant]
     Dosage: 200-250 MG
     Route: 048

REACTIONS (7)
  - DIABETES MELLITUS [None]
  - DIABETIC GASTROPARESIS [None]
  - DIABETIC KETOACIDOSIS [None]
  - KETOSIS [None]
  - LIMB INJURY [None]
  - NEUROPATHY PERIPHERAL [None]
  - PANCREATITIS [None]
